FAERS Safety Report 8115159-2 (Version None)
Quarter: 2012Q1

REPORT INFORMATION
  Report Type: 
  Country: None (occurrence: None)
  Receive Date: 20120206
  Receipt Date: 20120131
  Transmission Date: 20120608
  Serious: Yes (Other)
  Sender: FDA-Public Use
  Company Number: US-PFIZER INC-2012026942

PATIENT
  Sex: Male
  Weight: 77.098 kg

DRUGS (3)
  1. SEROQUEL [Concomitant]
     Dosage: UNK
  2. DEPAKOTE [Concomitant]
     Dosage: UNK
  3. EFFEXOR XR [Suspect]
     Indication: BIPOLAR DISORDER
     Dosage: 150 MG, 2X/DAY
     Route: 048
     Dates: start: 20070101

REACTIONS (1)
  - ERECTILE DYSFUNCTION [None]
